FAERS Safety Report 7549581-X (Version None)
Quarter: 2011Q2

REPORT INFORMATION
  Report Type: 
  Country: None (occurrence: None)
  Receive Date: 20110615
  Receipt Date: 20110607
  Transmission Date: 20111010
  Serious: Yes (Other)
  Sender: FDA-Public Use
  Company Number: A0930596A

PATIENT
  Age: 64 Year
  Sex: Male

DRUGS (6)
  1. PROVENTIL [Concomitant]
  2. DICLOFEN [Concomitant]
  3. ADVAIR DISKUS 100/50 [Suspect]
     Indication: ASTHMA
     Dosage: 1PUFF TWICE PER DAY
     Route: 055
  4. NEXIUM [Concomitant]
  5. LABETALOL HCL [Concomitant]
  6. FLUTICASONE PROPIONATE [Concomitant]

REACTIONS (3)
  - ASTHMA [None]
  - PRODUCT QUALITY ISSUE [None]
  - DRUG INEFFECTIVE [None]
